FAERS Safety Report 23699776 (Version 1)
Quarter: 2024Q2

REPORT INFORMATION
  Report Type: Spontaneous
  Country: US (occurrence: US)
  Receive Date: 20240403
  Receipt Date: 20240403
  Transmission Date: 20240716
  Serious: No
  Sender: FDA-Public Use
  Company Number: US-HALEON-USCH2024015662

PATIENT
  Sex: Male

DRUGS (1)
  1. EX-LAX REGULAR STRENGTH CHOCOLATED STIMULANT LAXATIVE [Suspect]
     Active Substance: SENNOSIDES
     Indication: Product used for unknown indication
     Dosage: 12 DF
     Dates: start: 20240322, end: 20240322

REACTIONS (1)
  - Incorrect dose administered [Unknown]
